FAERS Safety Report 9374883 (Version 1)
Quarter: 2013Q2

REPORT INFORMATION
  Report Type: Spontaneous
  Country: US (occurrence: US)
  Receive Date: 20130628
  Receipt Date: 20130628
  Transmission Date: 20140414
  Serious: Yes (Other)
  Sender: FDA-Public Use
  Company Number: US-ELI_LILLY_AND_COMPANY-US201306006134

PATIENT
  Age: 71 Year
  Sex: Male

DRUGS (1)
  1. EFFIENT [Suspect]
     Indication: DEVICE OCCLUSION
     Dosage: 10 MG, UNK

REACTIONS (2)
  - Cerebrovascular accident [Unknown]
  - Dyspnoea [Not Recovered/Not Resolved]
